FAERS Safety Report 8469219-7 (Version None)
Quarter: 2012Q2

REPORT INFORMATION
  Report Type: 
  Country: None (occurrence: None)
  Receive Date: 20120626
  Receipt Date: 20110602
  Transmission Date: 20120825
  Serious: Yes (Disabling)
  Sender: FDA-Public Use
  Company Number: US-MUTUAL PHARMACEUTICAL COMPANY, INC.-MTCA20110946

PATIENT
  Sex: Female

DRUGS (57)
  1. EFFEXOR XR [Concomitant]
     Indication: PRODUCT USED FOR UNKNOWN INDICATION
     Route: 048
     Dates: start: 20050219
  2. EFFEXOR XR [Concomitant]
     Route: 048
     Dates: start: 20070507
  3. METHYLPREDNISOLONE 4 MG DOSPAK [Concomitant]
     Indication: PRODUCT USED FOR UNKNOWN INDICATION
     Route: 065
     Dates: start: 20060622
  4. CIPROFLOXACIN [Concomitant]
     Indication: PRODUCT USED FOR UNKNOWN INDICATION
     Route: 048
     Dates: start: 20080730
  5. REGLAN [Suspect]
     Indication: ABDOMINAL PAIN
     Route: 048
     Dates: start: 20041201, end: 20110201
  6. LEVAQUIN [Concomitant]
     Indication: PRODUCT USED FOR UNKNOWN INDICATION
     Route: 048
     Dates: start: 20050119, end: 20070301
  7. PANTOPRAZOLE [Concomitant]
     Indication: PRODUCT USED FOR UNKNOWN INDICATION
     Route: 048
     Dates: start: 20080115
  8. CEFUROXIME [Concomitant]
     Indication: PRODUCT USED FOR UNKNOWN INDICATION
     Route: 048
     Dates: start: 20070228
  9. NORVASC [Concomitant]
     Route: 048
     Dates: start: 20061218
  10. METRONIDAZOLE [Concomitant]
     Indication: PRODUCT USED FOR UNKNOWN INDICATION
     Route: 048
     Dates: start: 20060118
  11. NULYTELY (CHERRY FLAVOR) 4000 ML [Concomitant]
     Indication: PRODUCT USED FOR UNKNOWN INDICATION
     Route: 065
     Dates: start: 20041228
  12. METOCLOPRAMIDE HYDROCHLORIDE [Suspect]
     Indication: GASTROINTESTINAL DISORDER
  13. REGLAN [Suspect]
     Indication: GASTROINTESTINAL DISORDER
  14. NITROQUICK 0.4 MG [Concomitant]
     Indication: ANGINA PECTORIS
     Route: 060
     Dates: start: 20050531
  15. EVOXAC [Concomitant]
     Indication: PRODUCT USED FOR UNKNOWN INDICATION
     Route: 048
     Dates: start: 20080324
  16. EVISTA [Concomitant]
     Indication: PRODUCT USED FOR UNKNOWN INDICATION
     Route: 048
     Dates: start: 20080402
  17. AMLODIPINE BESYLATE [Concomitant]
     Indication: PRODUCT USED FOR UNKNOWN INDICATION
     Route: 048
     Dates: start: 20070415
  18. TRAMADOL HCL [Concomitant]
     Route: 048
     Dates: start: 20051019
  19. PROPOXYPHENE NAPSYLATE W/ ACETAMINOPHEN [Concomitant]
     Indication: PAIN
     Route: 048
     Dates: start: 20080611
  20. ASMANEX 30 DOSES 220 MCG TWISTHALER [Concomitant]
     Indication: PRODUCT USED FOR UNKNOWN INDICATION
     Dates: start: 20061020
  21. MEGESTROL ACETATE 40 MG/ML SUSP [Concomitant]
     Indication: PRODUCT USED FOR UNKNOWN INDICATION
     Route: 048
     Dates: start: 20070507
  22. METOCLOPRAMIDE HYDROCHLORIDE [Suspect]
     Indication: ABDOMINAL PAIN
     Route: 048
     Dates: start: 20060117
  23. ZYRTEC [Concomitant]
     Indication: PRODUCT USED FOR UNKNOWN INDICATION
     Route: 048
     Dates: start: 20070330
  24. HYDROXYCHLOROQUINE SULFATE [Concomitant]
     Indication: PRODUCT USED FOR UNKNOWN INDICATION
     Route: 048
     Dates: start: 20080402
  25. POLYETH GLYCOL 3350 NF POWDER 527 GM [Concomitant]
     Route: 048
     Dates: start: 20050731
  26. MUPIROCIN 2% OINTMENT 22 GM [Concomitant]
     Route: 065
     Dates: start: 20070424, end: 20070501
  27. FLUCONAZOLE [Concomitant]
     Indication: PRODUCT USED FOR UNKNOWN INDICATION
     Route: 048
     Dates: start: 20070406
  28. RIFAMPIN [Concomitant]
     Indication: PRODUCT USED FOR UNKNOWN INDICATION
     Route: 048
     Dates: start: 20070424
  29. TRIAMTERENE AND HYDROCHLOROTHIAZIDE [Concomitant]
     Indication: PRODUCT USED FOR UNKNOWN INDICATION
     Route: 048
     Dates: start: 20050609
  30. PILOCARPINE [Concomitant]
     Indication: PRODUCT USED FOR UNKNOWN INDICATION
     Route: 048
     Dates: start: 20090123
  31. AMOX-CLAV 500 MG [Concomitant]
     Indication: PRODUCT USED FOR UNKNOWN INDICATION
     Route: 048
     Dates: start: 20090419, end: 20090401
  32. MUPIROCIN 2% OINTMENT 22 GM [Concomitant]
     Indication: PRODUCT USED FOR UNKNOWN INDICATION
     Route: 065
     Dates: start: 20070222
  33. RESTASIS 0.05% OPHTH EMULSION [Concomitant]
     Indication: PRODUCT USED FOR UNKNOWN INDICATION
     Route: 031
     Dates: start: 20070607
  34. GLYCOLAX 3350 NF POWDER 527 GM [Concomitant]
     Indication: PRODUCT USED FOR UNKNOWN INDICATION
     Route: 048
     Dates: start: 20041119
  35. AMOXICILLIN [Concomitant]
     Indication: PRODUCT USED FOR UNKNOWN INDICATION
     Route: 048
     Dates: start: 20060126
  36. NYSTATIN ORAL SUSPENSION [Concomitant]
     Route: 048
     Dates: start: 20050531
  37. METRONIDAZOLE [Concomitant]
     Route: 048
     Dates: start: 20050515
  38. PHISOHEX [Concomitant]
     Indication: PRODUCT USED FOR UNKNOWN INDICATION
     Route: 061
     Dates: start: 20070424, end: 20070501
  39. SULFAMETH/TRIMETHOPRIM 800/160 [Concomitant]
     Indication: PRODUCT USED FOR UNKNOWN INDICATION
     Route: 048
     Dates: start: 20070424
  40. PROAIR INHALER 8.5 GM [Concomitant]
     Indication: PRODUCT USED FOR UNKNOWN INDICATION
     Dates: start: 20070228
  41. DOXYCYCLINE HYCLATE [Concomitant]
     Indication: PRODUCT USED FOR UNKNOWN INDICATION
     Route: 048
     Dates: start: 20090424
  42. TRAMADOL HCL [Concomitant]
     Indication: PAIN
     Route: 048
     Dates: start: 20090424
  43. TRAMADOL HCL [Concomitant]
     Route: 048
     Dates: start: 20090519
  44. METOCLOPRAMIDE [Suspect]
     Indication: ABDOMINAL PAIN
     Route: 048
     Dates: start: 20041111, end: 20110107
  45. METOCLOPRAMIDE [Suspect]
     Indication: GASTROINTESTINAL DISORDER
  46. PROTONIX [Concomitant]
     Indication: PRODUCT USED FOR UNKNOWN INDICATION
     Route: 048
     Dates: start: 20041209
  47. DOXYCYCLINE HYCLATE [Concomitant]
     Route: 048
     Dates: start: 20070507
  48. NYSTATIN ORAL SUSPENSION [Concomitant]
     Route: 048
     Dates: start: 20041228
  49. PENICILLIN VK [Concomitant]
     Indication: PRODUCT USED FOR UNKNOWN INDICATION
     Route: 048
     Dates: start: 20051019
  50. BACITRACIN OPHTH OINTMENT 3.5 GM [Concomitant]
     Indication: PRODUCT USED FOR UNKNOWN INDICATION
     Route: 047
     Dates: start: 20081024, end: 20081001
  51. BACITRACIN OPHTH OINTMENT 3.5 GM [Concomitant]
     Route: 047
     Dates: start: 20080402, end: 20080401
  52. AMOX-CLAV 500 MG [Concomitant]
     Route: 048
     Dates: start: 20090424, end: 20090101
  53. POLYETH GLYCOL 3350 NF POWDER 527 GM [Concomitant]
     Indication: PRODUCT USED FOR UNKNOWN INDICATION
     Route: 048
     Dates: start: 20060126
  54. FOSAMAX 70 MG (4PK) [Concomitant]
     Indication: PRODUCT USED FOR UNKNOWN INDICATION
     Route: 048
     Dates: start: 20060223
  55. NORVASC [Concomitant]
     Indication: PRODUCT USED FOR UNKNOWN INDICATION
     Route: 048
     Dates: start: 20050119
  56. NIFEDICAL XL 30 MG [Concomitant]
     Indication: PRODUCT USED FOR UNKNOWN INDICATION
     Route: 048
     Dates: start: 20050117
  57. NYSTATIN ORAL SUSPENSION [Concomitant]
     Indication: PRODUCT USED FOR UNKNOWN INDICATION
     Route: 048
     Dates: start: 20051006

REACTIONS (1)
  - TARDIVE DYSKINESIA [None]
